FAERS Safety Report 21615186 (Version 1)
Quarter: 2022Q4

REPORT INFORMATION
  Report Type: Report from Study
  Country: US (occurrence: US)
  Receive Date: 20221118
  Receipt Date: 20221118
  Transmission Date: 20230113
  Serious: Yes (Hospitalization, Other)
  Sender: FDA-Public Use
  Company Number: US-UNITED THERAPEUTICS-UNT-2022-027176

PATIENT
  Age: 72 Year
  Sex: Male

DRUGS (5)
  1. TREPROSTINIL [Suspect]
     Active Substance: TREPROSTINIL
     Indication: Pulmonary arterial hypertension
     Dosage: UNK
     Dates: start: 20221023, end: 20221105
  2. TREPROSTINIL [Suspect]
     Active Substance: TREPROSTINIL
     Dosage: 16 ?G, QID (DOSE DECREASED)
     Dates: start: 20221105
  3. TYVASO DPI [Suspect]
     Active Substance: TREPROSTINIL
     Indication: Pulmonary arterial hypertension
     Dosage: UNK
  4. TYVASO DPI [Suspect]
     Active Substance: TREPROSTINIL
     Indication: Pulmonary arterial hypertension
     Dosage: UNK
  5. TYVASO DPI [Suspect]
     Active Substance: TREPROSTINIL
     Indication: Pulmonary arterial hypertension
     Dosage: UNK

REACTIONS (5)
  - Blood pressure decreased [Recovered/Resolved]
  - Unresponsive to stimuli [Recovered/Resolved]
  - Blood potassium decreased [Recovered/Resolved]
  - Blood calcium decreased [Recovered/Resolved]
  - Blood magnesium decreased [Recovered/Resolved]

NARRATIVE: CASE EVENT DATE: 20221101
